FAERS Safety Report 16286902 (Version 1)
Quarter: 2019Q2

REPORT INFORMATION
  Report Type: Spontaneous
  Country: US (occurrence: US)
  Receive Date: 20190508
  Receipt Date: 20190508
  Transmission Date: 20190711
  Serious: Yes (Hospitalization, Other)
  Sender: FDA-Public Use
  Company Number: US-B.I. PHARMACEUTICALS,INC./RIDGEFIELD-2019-12-001419

PATIENT
  Sex: Male
  Weight: 72.56 kg

DRUGS (2)
  1. JANUVIA [Suspect]
     Active Substance: SITAGLIPTIN PHOSPHATE
     Indication: TYPE 2 DIABETES MELLITUS
     Dosage: 100 MG, QD
     Route: 048
     Dates: start: 20091013, end: 20111007
  2. TRADJENTA [Suspect]
     Active Substance: LINAGLIPTIN
     Indication: TYPE 2 DIABETES MELLITUS
     Dosage: 5 MG, QD
     Route: 065
     Dates: start: 20111119, end: 20141014

REACTIONS (14)
  - Pulmonary mass [Unknown]
  - Hepatic cancer [Unknown]
  - Ulcer [Unknown]
  - Gastrointestinal wall thickening [Unknown]
  - Lower urinary tract symptoms [Unknown]
  - Genital lesion [Unknown]
  - Prostate cancer [Unknown]
  - Bladder disorder [Unknown]
  - Adenotonsillectomy [Unknown]
  - Erectile dysfunction [Unknown]
  - Nasopharyngitis [Unknown]
  - Pancreatic neuroendocrine tumour metastatic [Unknown]
  - B-cell small lymphocytic lymphoma [Unknown]
  - Gastrooesophageal reflux disease [Unknown]

NARRATIVE: CASE EVENT DATE: 2010
